FAERS Safety Report 9136140 (Version 8)
Quarter: 2013Q4

REPORT INFORMATION
  Report Type: Spontaneous
  Country: US (occurrence: US)
  Receive Date: 20130304
  Receipt Date: 20131211
  Transmission Date: 20140711
  Serious: Yes (Death, Life-Threatening, Hospitalization, Other)
  Sender: FDA-Public Use
  Company Number: US-GLAXOSMITHKLINE-A0984463A

PATIENT
  Age: 40 Year
  Sex: Female

DRUGS (1)
  1. FLOLAN [Suspect]
     Indication: PULMONARY ARTERIAL HYPERTENSION
     Dosage: 54NGKM CONTINUOUS
     Route: 042
     Dates: start: 19991101

REACTIONS (24)
  - Pneumonia [Unknown]
  - Device related infection [Unknown]
  - Chest discomfort [Unknown]
  - Dyspnoea [Not Recovered/Not Resolved]
  - Drug ineffective [Unknown]
  - Panic attack [Unknown]
  - Device malfunction [Recovered/Resolved]
  - Malaise [Not Recovered/Not Resolved]
  - Systemic inflammatory response syndrome [Unknown]
  - Pyrexia [Unknown]
  - Chills [Unknown]
  - Cough [Unknown]
  - Dyspnoea exertional [Unknown]
  - Nausea [Unknown]
  - Vomiting [Unknown]
  - Abdominal pain upper [Unknown]
  - Hypoxia [Fatal]
  - Bronchospasm [Unknown]
  - Abdominal pain [Unknown]
  - Hypotension [Fatal]
  - Haematoma [Fatal]
  - Renal failure [Fatal]
  - Arterial haemorrhage [Unknown]
  - Haematocrit decreased [Unknown]
